FAERS Safety Report 9001639 (Version 2)
Quarter: 2013Q1

REPORT INFORMATION
  Report Type: Spontaneous
  Country: US (occurrence: US)
  Receive Date: 20130107
  Receipt Date: 20130114
  Transmission Date: 20140127
  Serious: No
  Sender: FDA-Public Use
  Company Number: US-PFIZER INC-2013006597

PATIENT
  Sex: Female

DRUGS (1)
  1. PRISTIQ [Suspect]
     Dosage: UNK
     Dates: end: 201212

REACTIONS (4)
  - Feeling abnormal [Unknown]
  - Malaise [Unknown]
  - Depression [Unknown]
  - Insomnia [Unknown]
